FAERS Safety Report 21250646 (Version 1)
Quarter: 2022Q3

REPORT INFORMATION
  Report Type: Report from Study
  Country: US (occurrence: US)
  Receive Date: 20220824
  Receipt Date: 20220824
  Transmission Date: 20221027
  Serious: Yes (Other)
  Sender: FDA-Public Use
  Company Number: US-ABBVIE-22K-163-4513870-00

PATIENT
  Age: 66 Year
  Sex: Female

DRUGS (4)
  1. RINVOQ [Suspect]
     Active Substance: UPADACITINIB
     Indication: Rheumatoid arthritis
     Route: 048
  2. COVID-19 VACCINE NOS [Concomitant]
     Active Substance: COVID-19 VACCINE NOS
     Indication: COVID-19 immunisation
     Dosage: 1ST DOSE?JOHNSON + JOHNSON
     Dates: start: 20210401, end: 20210401
  3. COVID-19 VACCINE NOS [Concomitant]
     Active Substance: COVID-19 VACCINE NOS
     Dosage: 2ND DOSE
     Dates: start: 2021, end: 2021
  4. COVID-19 VACCINE NOS [Concomitant]
     Active Substance: COVID-19 VACCINE NOS
     Dosage: 3RD DOSE
     Dates: start: 20211004, end: 20211004

REACTIONS (1)
  - Parathyroid gland operation [Recovering/Resolving]

NARRATIVE: CASE EVENT DATE: 20220801
